FAERS Safety Report 4476772-7 (Version None)
Quarter: 2004Q4

REPORT INFORMATION
  Report Type: 
  Country: None (occurrence: None)
  Receive Date: 20041015
  Receipt Date: 20041015
  Transmission Date: 20050328
  Serious: Yes (Hospitalization)
  Sender: FDA-Public Use
  Company Number: None

PATIENT
  Age: 61 Year
  Sex: Female
  Weight: 48.1 kg

DRUGS (2)
  1. 5 FU [Suspect]
     Indication: RECTAL CANCER
     Dosage: 5FU 740 MG IVP WEEKLY X 6
     Route: 042
  2. LEUCOVORIN [Suspect]
     Dosage: 740MG WEEKLY X 6

REACTIONS (7)
  - ASTHENIA [None]
  - DIARRHOEA [None]
  - INFECTION [None]
  - LIVER FUNCTION TEST ABNORMAL [None]
  - NAUSEA [None]
  - THERAPY NON-RESPONDER [None]
  - VOMITING [None]
